FAERS Safety Report 20159558 (Version 1)
Quarter: 2021Q4

REPORT INFORMATION
  Report Type: Spontaneous
  Country: US (occurrence: None)
  Receive Date: 20211208
  Receipt Date: 20211208
  Transmission Date: 20220303
  Serious: Yes (Death, Hospitalization, Other)
  Sender: FDA-Public Use
  Company Number: US-ROCHE-2972314

PATIENT
  Sex: Male
  Weight: 102.15 kg

DRUGS (6)
  1. VALCYTE [Suspect]
     Active Substance: VALGANCICLOVIR HYDROCHLORIDE
     Indication: Cytomegalovirus infection
     Route: 048
     Dates: start: 2015, end: 202111
  2. PREDNISONE [Concomitant]
     Active Substance: PREDNISONE
     Indication: Idiopathic pulmonary fibrosis
     Dosage: ANTI-REJECTION FOLLOWING TRANSPLANT
  3. OXYGEN [Concomitant]
     Active Substance: OXYGEN
     Indication: Lung transplant
     Route: 055
     Dates: end: 20211126
  4. NOXAFIL [Concomitant]
     Active Substance: POSACONAZOLE
     Indication: Pneumonia fungal
     Dosage: STARTED AFTER VALCYTE
  5. GLIMEPIRIDE [Concomitant]
     Active Substance: GLIMEPIRIDE
     Dosage: STARTED AFTER VALCYTE
  6. ZORTRESS [Concomitant]
     Active Substance: EVEROLIMUS

REACTIONS (12)
  - Death [Fatal]
  - Pulmonary fibrosis [Not Recovered/Not Resolved]
  - Cerebral haemorrhage [Recovered/Resolved with Sequelae]
  - Aortic aneurysm [Not Recovered/Not Resolved]
  - Pneumonia fungal [Unknown]
  - Atrial fibrillation [Not Recovered/Not Resolved]
  - Hypertension [Not Recovered/Not Resolved]
  - Peripheral swelling [Not Recovered/Not Resolved]
  - Fall [Unknown]
  - Blood cholesterol increased [Not Recovered/Not Resolved]
  - Rib fracture [Unknown]
  - Off label use [Unknown]

NARRATIVE: CASE EVENT DATE: 20160101
